FAERS Safety Report 9283333 (Version 1)
Quarter: 2013Q2

REPORT INFORMATION
  Report Type: Spontaneous
  Country: US (occurrence: US)
  Receive Date: 20130510
  Receipt Date: 20130510
  Transmission Date: 20140414
  Serious: No
  Sender: FDA-Public Use
  Company Number: US-GLAXOSMITHKLINE-A0998899A

PATIENT
  Age: 66 Year
  Sex: Female

DRUGS (11)
  1. TYKERB [Suspect]
     Indication: BREAST CANCER
     Dosage: 1000MG PER DAY
     Route: 048
     Dates: start: 20120830, end: 20121016
  2. CAPTOPRIL [Concomitant]
  3. METOPROLOL [Concomitant]
  4. LOVASTATIN [Concomitant]
  5. HCTZ [Concomitant]
  6. HUMALOG [Concomitant]
  7. METFORMIN [Concomitant]
  8. GLYBURIDE [Concomitant]
  9. VERAPAMIL [Concomitant]
  10. ALENDRONATE [Concomitant]
  11. VICODIN [Concomitant]

REACTIONS (1)
  - Diarrhoea [Recovered/Resolved]
